FAERS Safety Report 5922544-3 (Version None)
Quarter: 2008Q3

REPORT INFORMATION
  Report Type: 
  Country: None (occurrence: None)
  Receive Date: 20080909
  Receipt Date: 20071023
  Transmission Date: 20090109
  Serious: Yes (Other)
  Sender: FDA-Public Use
  Company Number: 163-20785-05060395

PATIENT
  Age: 65 Year
  Sex: Male

DRUGS (6)
  1. THALOMID [Suspect]
     Indication: MULTIPLE MYELOMA
     Dosage: 200 MG, QD, ORAL : 100 MG, 1 IN 1 D, ORAL : 50 MG, 1 IN 1 D, ORAL
     Route: 048
     Dates: start: 20050324, end: 20050616
  2. THALOMID [Suspect]
     Indication: MULTIPLE MYELOMA
     Dosage: 200 MG, QD, ORAL : 100 MG, 1 IN 1 D, ORAL : 50 MG, 1 IN 1 D, ORAL
     Route: 048
     Dates: start: 20041227
  3. THALOMID [Suspect]
     Indication: MULTIPLE MYELOMA
     Dosage: 200 MG, QD, ORAL : 100 MG, 1 IN 1 D, ORAL : 50 MG, 1 IN 1 D, ORAL
     Route: 048
     Dates: start: 20050224
  4. LEXAPRO [Concomitant]
  5. NEXIUM [Concomitant]
  6. MULTIVITAMIN [Concomitant]

REACTIONS (5)
  - BLOOD PRESSURE DECREASED [None]
  - BRADYCARDIA [None]
  - NEUROPATHY PERIPHERAL [None]
  - TREMOR [None]
  - VERTIGO [None]
